FAERS Safety Report 18705278 (Version 4)
Quarter: 2022Q3

REPORT INFORMATION
  Report Type: Spontaneous
  Country: US (occurrence: US)
  Receive Date: 20210106
  Receipt Date: 20220826
  Transmission Date: 20221027
  Serious: Yes (Hospitalization, Other)
  Sender: FDA-Public Use
  Company Number: US-GILEAD-2021-0511357

PATIENT
  Age: 34 Year
  Sex: Male
  Weight: 78.93 kg

DRUGS (54)
  1. TRUVADA [Suspect]
     Active Substance: EMTRICITABINE\TENOFOVIR DISOPROXIL FUMARATE
     Indication: HIV infection
     Dosage: UNK
     Route: 048
     Dates: start: 2004, end: 2013
  2. TRUVADA [Suspect]
     Active Substance: EMTRICITABINE\TENOFOVIR DISOPROXIL FUMARATE
     Dosage: UNK
     Route: 048
     Dates: start: 2004, end: 2012
  3. TRUVADA [Suspect]
     Active Substance: EMTRICITABINE\TENOFOVIR DISOPROXIL FUMARATE
     Dosage: UNK
     Route: 048
     Dates: start: 20080515, end: 20130613
  4. TRUVADA [Suspect]
     Active Substance: EMTRICITABINE\TENOFOVIR DISOPROXIL FUMARATE
     Dosage: UNK
     Route: 048
     Dates: start: 200410, end: 20130613
  5. STRIBILD [Suspect]
     Active Substance: COBICISTAT\ELVITEGRAVIR\EMTRICITABINE\TENOFOVIR DISOPROXIL FUMARATE
     Indication: HIV infection
     Dosage: UNK
     Route: 048
     Dates: start: 20121108, end: 201212
  6. STRIBILD [Suspect]
     Active Substance: COBICISTAT\ELVITEGRAVIR\EMTRICITABINE\TENOFOVIR DISOPROXIL FUMARATE
     Dosage: UNK
     Route: 048
     Dates: start: 2004, end: 2012
  7. STRIBILD [Suspect]
     Active Substance: COBICISTAT\ELVITEGRAVIR\EMTRICITABINE\TENOFOVIR DISOPROXIL FUMARATE
     Dosage: UNK
     Route: 048
     Dates: start: 20121108, end: 20121129
  8. ATRIPLA [Suspect]
     Active Substance: EFAVIRENZ\EMTRICITABINE\TENOFOVIR DISOPROXIL FUMARATE
     Indication: Product used for unknown indication
     Route: 065
  9. EPIVIR [Concomitant]
     Active Substance: LAMIVUDINE
  10. NEPHRO VITE RX [Concomitant]
     Active Substance: ASCORBIC ACID\BIOTIN\CALCIUM PANTOTHENATE\CYANOCOBALAMIN\FOLIC ACID\NIACINAMIDE\PYRIDOXINE HYDROCHLO
  11. NORVIR [Concomitant]
     Active Substance: RITONAVIR
  12. REYATAZ [Concomitant]
     Active Substance: ATAZANAVIR SULFATE
  13. VITAMIN D NOS [Concomitant]
     Active Substance: VITAMIN D NOS
     Dosage: UNK
  14. ACETAMINOPHEN [Concomitant]
     Active Substance: ACETAMINOPHEN
  15. TIVICAY [Concomitant]
     Active Substance: DOLUTEGRAVIR SODIUM
  16. ZIAGEN [Concomitant]
     Active Substance: ABACAVIR SULFATE
  17. EPZICOM [Concomitant]
     Active Substance: ABACAVIR SULFATE\LAMIVUDINE
  18. AMOXICILLIN [Concomitant]
     Active Substance: AMOXICILLIN
  19. ASPIRIN [Concomitant]
     Active Substance: ASPIRIN
  20. PENICILLIN [Concomitant]
     Active Substance: PENICILLIN
  21. OMEPRAZOLE [Concomitant]
     Active Substance: OMEPRAZOLE
  22. RENVELA [Concomitant]
     Active Substance: SEVELAMER CARBONATE
  23. CALCITRIOL [Concomitant]
     Active Substance: CALCITRIOL
  24. PROCRIT [Concomitant]
     Active Substance: ERYTHROPOIETIN
  25. SODIUM POLYSTYRENE SULFONATE [Concomitant]
     Active Substance: SODIUM POLYSTYRENE SULFONATE
  26. SUSTIVA [Concomitant]
     Active Substance: EFAVIRENZ
  27. ACCUPRIL [Concomitant]
     Active Substance: QUINAPRIL HYDROCHLORIDE
  28. LISINOPRIL [Concomitant]
     Active Substance: LISINOPRIL
  29. AMLODIPINE [Concomitant]
     Active Substance: AMLODIPINE BESYLATE
  30. HEPARIN [Concomitant]
     Active Substance: HEPARIN SODIUM
  31. PREDNISONE [Concomitant]
     Active Substance: PREDNISONE
  32. CORTISPORIN EYE [Concomitant]
  33. HYDROCHLOROTHIAZIDE [Concomitant]
     Active Substance: HYDROCHLOROTHIAZIDE
  34. QUINAPRIL [Concomitant]
     Active Substance: QUINAPRIL
  35. ACETAMINOPHEN\HYDROCODONE [Concomitant]
     Active Substance: ACETAMINOPHEN\HYDROCODONE
  36. SODIUM BICARBONATE [Concomitant]
     Active Substance: SODIUM BICARBONATE
  37. TIZANIDINE [Concomitant]
     Active Substance: TIZANIDINE
  38. OXYCODONE AND ACETAMINOPHEN [Concomitant]
     Active Substance: ACETAMINOPHEN\OXYCODONE HYDROCHLORIDE
  39. FUROSEMIDE [Concomitant]
     Active Substance: FUROSEMIDE
  40. SERTRALINE [Concomitant]
     Active Substance: SERTRALINE HYDROCHLORIDE
  41. AMOXICILLIN\CLAVULANIC ACID [Concomitant]
     Active Substance: AMOXICILLIN\CLAVULANIC ACID
  42. CEPHALEXIN [Concomitant]
     Active Substance: CEPHALEXIN
  43. DIFLUCAN [Concomitant]
     Active Substance: FLUCONAZOLE
  44. ALPRAZOLAM [Concomitant]
     Active Substance: ALPRAZOLAM
  45. PROMETHAZINE [Concomitant]
     Active Substance: PROMETHAZINE HYDROCHLORIDE
  46. AURYXIA [Concomitant]
     Active Substance: TETRAFERRIC TRICITRATE DECAHYDRATE
  47. CIPROFLOXACIN [Concomitant]
     Active Substance: CIPROFLOXACIN
  48. ATROPINE\DIPHENOXYLATE [Concomitant]
     Active Substance: ATROPINE\DIPHENOXYLATE
  49. IBUPROFEN [Concomitant]
     Active Substance: IBUPROFEN
  50. ONDANSETRON [Concomitant]
     Active Substance: ONDANSETRON
  51. LAMIVUDINE [Concomitant]
     Active Substance: LAMIVUDINE
  52. ABACAVIR [Concomitant]
     Active Substance: ABACAVIR
  53. AZITHROMYCIN [Concomitant]
     Active Substance: AZITHROMYCIN
  54. BUPRENORPHINE\NALOXONE [Concomitant]
     Active Substance: BUPRENORPHINE\NALOXONE

REACTIONS (24)
  - End stage renal disease [Not Recovered/Not Resolved]
  - Clavicle fracture [Unknown]
  - Chronic kidney disease [Unknown]
  - Multiple fractures [Unknown]
  - Acute kidney injury [Not Recovered/Not Resolved]
  - Renal failure [Not Recovered/Not Resolved]
  - Tooth loss [Not Recovered/Not Resolved]
  - Delusional disorder, unspecified type [Unknown]
  - Night sweats [Unknown]
  - Anxiety [Unknown]
  - Anxiety [Not Recovered/Not Resolved]
  - Depression [Unknown]
  - Depression [Not Recovered/Not Resolved]
  - Bone density decreased [Unknown]
  - Fracture [Recovered/Resolved]
  - Dysstasia [Not Recovered/Not Resolved]
  - Mobility decreased [Not Recovered/Not Resolved]
  - Decreased appetite [Unknown]
  - Nausea [Unknown]
  - Micturition disorder [Unknown]
  - Muscle spasms [Unknown]
  - Fatigue [Unknown]
  - Asthenia [Unknown]
  - Blood creatinine increased [Unknown]

NARRATIVE: CASE EVENT DATE: 20090326
